FAERS Safety Report 5149932-X (Version None)
Quarter: 2006Q4

REPORT INFORMATION
  Report Type: 
  Country: None (occurrence: None)
  Receive Date: 20061108
  Receipt Date: 20061025
  Transmission Date: 20070319
  Serious: Yes (Death, Hospitalization)
  Sender: FDA-Public Use
  Company Number: 2006110198

PATIENT
  Sex: Female

DRUGS (2)
  1. SUTENT [Suspect]
     Indication: INFLAMMATORY CARCINOMA OF THE BREAST
     Dosage: 50 MG (50 MG, 1 IN 1 D), ORAL
     Route: 048
     Dates: start: 20060524, end: 20060621
  2. LOMOTIL [Suspect]
     Indication: DIARRHOEA
     Dates: start: 20060601

REACTIONS (2)
  - DEHYDRATION [None]
  - DIARRHOEA [None]
